FAERS Safety Report 16357959 (Version 2)
Quarter: 2019Q2

REPORT INFORMATION
  Report Type: Spontaneous
  Country: US (occurrence: US)
  Receive Date: 20190527
  Receipt Date: 20190530
  Transmission Date: 20190711
  Serious: Yes (Other)
  Sender: FDA-Public Use
  Company Number: US-PFIZER INC-2017345580

PATIENT
  Age: 84 Year
  Sex: Female
  Weight: 51.71 kg

DRUGS (2)
  1. XALATAN [Suspect]
     Active Substance: LATANOPROST
     Indication: GLAUCOMA
     Dosage: UNK (1 DROP EACH EYE ONCE A DAY, 125 MCG-2.5 ML)
  2. XALATAN [Suspect]
     Active Substance: LATANOPROST
     Indication: OCULAR HYPERTENSION
     Dosage: UNK, 1X/DAY (ONCE A DAY IN RT AND LT EYES)
     Dates: start: 201612

REACTIONS (3)
  - Anaemia [Unknown]
  - Fall [Unknown]
  - Muscular weakness [Recovering/Resolving]

NARRATIVE: CASE EVENT DATE: 2016
